FAERS Safety Report 10908199 (Version 1)
Quarter: 2015Q1

REPORT INFORMATION
  Report Type: Spontaneous
  Country: SG (occurrence: SG)
  Receive Date: 20150312
  Receipt Date: 20150312
  Transmission Date: 20150721
  Serious: Yes (Death)
  Sender: FDA-Public Use
  Company Number: SG-PFIZER INC-2015083187

PATIENT
  Age: 5 Decade
  Sex: Male

DRUGS (1)
  1. NEUMEGA [Suspect]
     Active Substance: OPRELVEKIN

REACTIONS (1)
  - Death [Fatal]
